FAERS Safety Report 7645031-3 (Version None)
Quarter: 2011Q3

REPORT INFORMATION
  Report Type: 
  Country: None (occurrence: None)
  Receive Date: 20110729
  Receipt Date: 20110722
  Transmission Date: 20111222
  Serious: Yes (Death)
  Sender: FDA-Public Use
  Company Number: JP-GLAXOSMITHKLINE-B0733223A

PATIENT
  Sex: Male

DRUGS (5)
  1. DOBUTAMINE HCL [Concomitant]
  2. VFEND [Concomitant]
     Indication: FUNGAL INFECTION
     Dosage: 400MG PER DAY
     Route: 048
     Dates: start: 20100731, end: 20110708
  3. TRACLEER [Concomitant]
     Indication: PULMONARY ARTERIAL HYPERTENSION
     Dosage: 125MG PER DAY
     Route: 048
     Dates: start: 20100715, end: 20110710
  4. REVATIO [Concomitant]
     Indication: PULMONARY ARTERIAL HYPERTENSION
     Dosage: 60MG PER DAY
     Route: 048
     Dates: start: 20100731, end: 20110710
  5. FLOLAN [Suspect]
     Indication: PULMONARY ARTERIAL HYPERTENSION
     Route: 042
     Dates: start: 20101203, end: 20110710

REACTIONS (6)
  - GENERAL PHYSICAL HEALTH DETERIORATION [None]
  - PULMONARY ALVEOLAR HAEMORRHAGE [None]
  - PLATELET COUNT DECREASED [None]
  - PNEUMONIA [None]
  - EPISTAXIS [None]
  - ASCITES [None]
